FAERS Safety Report 4347460-2 (Version None)
Quarter: 2004Q2

REPORT INFORMATION
  Report Type: 
  Country: None (occurrence: None)
  Receive Date: 20040426
  Receipt Date: 20040426
  Transmission Date: 20050107
  Serious: Yes (Other)
  Sender: FDA-Public Use
  Company Number: None

PATIENT
  Age: 50 Year
  Sex: Female
  Weight: 58.9676 kg

DRUGS (1)
  1. SPECTRACEF [Suspect]
     Indication: NASOPHARYNGITIS
     Dosage: TAKE 1 BID ORAL
     Route: 048
     Dates: start: 20040417, end: 20040420

REACTIONS (1)
  - DIZZINESS [None]
